FAERS Safety Report 15892650 (Version 1)
Quarter: 2019Q1

REPORT INFORMATION
  Report Type: Report from Study
  Country: US (occurrence: US)
  Receive Date: 20190130
  Receipt Date: 20190130
  Transmission Date: 20190417
  Serious: No
  Sender: FDA-Public Use
  Company Number: US-EXELIXIS-CABO-18015620

PATIENT
  Sex: Male

DRUGS (1)
  1. CABOMETYX [Suspect]
     Active Substance: CABOZANTINIB S-MALATE
     Indication: RENAL CANCER
     Dosage: 60 MG, QD
     Route: 048
     Dates: start: 20180727, end: 20180831

REACTIONS (7)
  - Toothache [Unknown]
  - Pain in jaw [Unknown]
  - Myalgia [Unknown]
  - Oral pain [Unknown]
  - Visual impairment [Unknown]
  - Tongue disorder [Unknown]
  - Gingivitis [Unknown]

NARRATIVE: CASE EVENT DATE: 2018
